FAERS Safety Report 8622849-1 (Version None)
Quarter: 2012Q3

REPORT INFORMATION
  Report Type: 
  Country: None (occurrence: None)
  Receive Date: 20120827
  Receipt Date: 20120820
  Transmission Date: 20120928
  Serious: Yes (Hospitalization)
  Sender: FDA-Public Use
  Company Number: PHHY2012FR072905

PATIENT
  Sex: Male

DRUGS (10)
  1. TEGRETOL [Suspect]
     Dates: end: 20110504
  2. AMOXICILLIN [Concomitant]
     Indication: PHARYNGITIS
     Dosage: 1 G, BID
     Route: 048
     Dates: start: 20110413, end: 20110418
  3. ATORVASTATIN [Concomitant]
     Route: 048
  4. TEGRETOL [Suspect]
     Indication: TRIGEMINAL NEURALGIA
     Dosage: 200 MG, TID
     Dates: start: 20110325, end: 20110424
  5. TEGRETOL [Suspect]
     Dosage: UNK UKN, TOTAL 3 INTAKES
     Dates: start: 20110503
  6. ENALAPRIL MALEATE AND HYDROCHLOROTHIAZIDE [Concomitant]
     Route: 048
  7. FLUTICASONE PROPIONATE/SALMETEROL [Concomitant]
     Dosage: UNK UKN, ONE INHALATION DAILY
  8. PLAVIX [Concomitant]
     Route: 048
  9. NEXIUM [Concomitant]
     Route: 048
  10. PREDNISOLONE [Concomitant]
     Indication: PHARYNGITIS
     Dosage: 40 MG, DAILY
     Dates: start: 20110413, end: 20110415

REACTIONS (24)
  - EOSINOPHILIA [None]
  - FEEDING DISORDER [None]
  - DRUG RASH WITH EOSINOPHILIA AND SYSTEMIC SYMPTOMS [None]
  - SKIN EXFOLIATION [None]
  - RASH MACULO-PAPULAR [None]
  - PURPURA [None]
  - SKIN LESION [None]
  - MOUTH INJURY [None]
  - ERYTHEMA OF EYELID [None]
  - HUMAN HERPES VIRUS 6 SEROLOGY POSITIVE [None]
  - RASH [None]
  - CHEILITIS [None]
  - HAEMOCONCENTRATION [None]
  - HYPOGAMMAGLOBULINAEMIA [None]
  - THROMBOCYTOPENIA [None]
  - MYELOCYTOSIS [None]
  - GLOSSITIS [None]
  - HYPOTHYROIDISM [None]
  - HYPOTENSION [None]
  - SEPSIS [None]
  - DRUG ERUPTION [None]
  - RENAL IMPAIRMENT [None]
  - INFLAMMATION [None]
  - GAMMA-GLUTAMYLTRANSFERASE [None]
